FAERS Safety Report 9869247 (Version 1)
Quarter: 2014Q1

REPORT INFORMATION
  Report Type: Spontaneous
  Country: FI (occurrence: FI)
  Receive Date: 20140205
  Receipt Date: 20140205
  Transmission Date: 20141002
  Serious: Yes (Disabling)
  Sender: FDA-Public Use
  Company Number: FI-ASTRAZENECA-2014SE06171

PATIENT
  Sex: Male

DRUGS (3)
  1. CRESTOR [Suspect]
     Indication: CORONARY ARTERY DISEASE
     Route: 048
     Dates: start: 2002, end: 201311
  2. PRIMASPAN [Concomitant]
     Indication: CORONARY ARTERY DISEASE
     Route: 048
  3. EXPROS [Concomitant]
     Indication: BENIGN PROSTATIC HYPERPLASIA
     Dates: start: 2002

REACTIONS (2)
  - Trigeminal neuralgia [Recovered/Resolved]
  - Salivary gland enlargement [Recovered/Resolved]
